FAERS Safety Report 15675916 (Version 1)
Quarter: 2018Q4

REPORT INFORMATION
  Report Type: Spontaneous
  Country: US (occurrence: US)
  Receive Date: 20181119
  Receipt Date: 20181119
  Transmission Date: 20190205
  Serious: Yes (Hospitalization)
  Sender: FDA-Public Use
  Company Number: None

PATIENT
  Age: 33 Year
  Sex: Male
  Weight: 54.5 kg

DRUGS (1)
  1. INTRON A [Suspect]
     Active Substance: INTERFERON ALFA-2B
     Dosage: ?          OTHER DOSE:153 MU;?
     Dates: end: 20130123

REACTIONS (4)
  - Failure to thrive [None]
  - Metastases to central nervous system [None]
  - Abdominal distension [None]
  - Pain [None]

NARRATIVE: CASE EVENT DATE: 20130614
